FAERS Safety Report 9181837 (Version 1)
Quarter: 2013Q1

REPORT INFORMATION
  Report Type: Spontaneous
  Country: FR (occurrence: FR)
  Receive Date: 20130322
  Receipt Date: 20130322
  Transmission Date: 20140127
  Serious: Yes (Other)
  Sender: FDA-Public Use
  Company Number: FR-JNJFOC-20130308581

PATIENT
  Sex: 0

DRUGS (2)
  1. DOXORUBICIN [Suspect]
     Indication: SYNOVIAL SARCOMA
     Route: 042
  2. IFOSFAMIDE [Suspect]
     Indication: SYNOVIAL SARCOMA
     Dosage: 4 G/M2 DAILY (OVER 24 HOURS CONTINUOUS INFUSION) FOR 3 DAYS FOR A TOTAL DOSE OF 12 G/M2
     Route: 065

REACTIONS (6)
  - Nervous system disorder [Unknown]
  - Cystitis [Unknown]
  - Febrile neutropenia [Unknown]
  - Neutropenia [Unknown]
  - Thrombocytopenia [Unknown]
  - Off label use [Unknown]
